FAERS Safety Report 7743938-X (Version None)
Quarter: 2011Q3

REPORT INFORMATION
  Report Type: 
  Country: None (occurrence: None)
  Receive Date: 20110912
  Receipt Date: 20110830
  Transmission Date: 20111222
  Serious: Yes (Hospitalization)
  Sender: FDA-Public Use
  Company Number: ZA-VIIV HEALTHCARE LIMITED-B0739817B

PATIENT
  Sex: Female
  Weight: 2.1 kg

DRUGS (2)
  1. COMBIVIR [Suspect]
     Indication: HIV INFECTION
     Dosage: 450MG TWICE PER DAY
     Route: 064
     Dates: start: 20110630, end: 20110809
  2. LOPINAVIR/RITONAVIR [Suspect]
     Indication: HIV INFECTION
     Dosage: 750MG TWICE PER DAY
     Route: 064
     Dates: start: 20110630, end: 20110809

REACTIONS (6)
  - MATERNAL EXPOSURE DURING PREGNANCY [None]
  - APGAR SCORE LOW [None]
  - MATERNAL DRUGS AFFECTING FOETUS [None]
  - CAESAREAN SECTION [None]
  - PREMATURE BABY [None]
  - NEONATAL RESPIRATORY DISTRESS SYNDROME [None]
